FAERS Safety Report 8339810-7 (Version None)
Quarter: 2012Q2

REPORT INFORMATION
  Report Type: 
  Country: None (occurrence: None)
  Receive Date: 20120507
  Receipt Date: 20120427
  Transmission Date: 20120825
  Serious: Yes (Hospitalization)
  Sender: FDA-Public Use
  Company Number: US-BAYER-2011-042742

PATIENT
  Age: 46 Year
  Sex: Female
  Weight: 95 kg

DRUGS (1)
  1. YAZ [Suspect]
     Indication: ANXIETY
     Dosage: UNK
     Dates: start: 20090301, end: 20090601

REACTIONS (10)
  - CARDIAC ARREST [None]
  - ANXIETY [None]
  - FEAR [None]
  - PULMONARY EMBOLISM [None]
  - VENTRICULAR FIBRILLATION [None]
  - ANHEDONIA [None]
  - INJURY [None]
  - PAIN [None]
  - MYOCARDIAL INFARCTION [None]
  - PSYCHOLOGICAL TRAUMA [None]
